FAERS Safety Report 26038507 (Version 1)
Quarter: 2025Q4

REPORT INFORMATION
  Report Type: Spontaneous
  Country: MY (occurrence: MY)
  Receive Date: 20251113
  Receipt Date: 20251113
  Transmission Date: 20260118
  Serious: Yes (Death, Hospitalization)
  Sender: GENMAB
  Company Number: MY-ABBVIE-6543085

PATIENT
  Sex: Male

DRUGS (1)
  1. EPKINLY [Suspect]
     Active Substance: EPCORITAMAB-BYSP
     Indication: Diffuse large B-cell lymphoma
     Dosage: 48 MILLIGRAM
     Route: 058

REACTIONS (1)
  - COVID-19 [Fatal]
